FAERS Safety Report 21331550 (Version 1)
Quarter: 2022Q3

REPORT INFORMATION
  Report Type: Spontaneous
  Country: AR (occurrence: AR)
  Receive Date: 20220914
  Receipt Date: 20220914
  Transmission Date: 20221027
  Serious: Yes (Other)
  Sender: FDA-Public Use
  Company Number: AR-PFIZER INC-PV202200060683

PATIENT
  Age: 72 Year
  Sex: Female

DRUGS (1)
  1. ENBREL [Suspect]
     Active Substance: ETANERCEPT
     Indication: Product used for unknown indication
     Dosage: UNK
     Route: 065

REACTIONS (8)
  - Rheumatoid arthritis [Unknown]
  - Blood thyroid stimulating hormone increased [Unknown]
  - Rheumatoid factor increased [Unknown]
  - Anti-cyclic citrullinated peptide antibody positive [Unknown]
  - Red blood cell sedimentation rate increased [Unknown]
  - Neutrophil percentage increased [Unknown]
  - Gait disturbance [Unknown]
  - Loss of personal independence in daily activities [Unknown]
